FAERS Safety Report 10637144 (Version 1)
Quarter: 2014Q4

REPORT INFORMATION
  Report Type: Spontaneous
  Country: US (occurrence: US)
  Receive Date: 20141208
  Receipt Date: 20141208
  Transmission Date: 20150529
  Serious: No
  Sender: FDA-Public Use
  Company Number: US-PFIZER INC-2014332566

PATIENT
  Sex: Male

DRUGS (1)
  1. VIAGRA [Suspect]
     Active Substance: SILDENAFIL CITRATE
     Indication: ERECTILE DYSFUNCTION
     Dosage: 5 MG, AS NEEDED
     Route: 048
     Dates: start: 201410

REACTIONS (2)
  - Erection increased [Not Recovered/Not Resolved]
  - Ejaculation disorder [Unknown]

NARRATIVE: CASE EVENT DATE: 20141202
